FAERS Safety Report 6043561-1 (Version None)
Quarter: 2009Q1

REPORT INFORMATION
  Report Type: 
  Country: None (occurrence: None)
  Receive Date: 20090114
  Receipt Date: 20090114
  Transmission Date: 20090719
  Serious: Yes (Other)
  Sender: FDA-Public Use
  Company Number: None

PATIENT
  Age: 47 Year
  Sex: Male
  Weight: 67.586 kg

DRUGS (8)
  1. LYRICA [Suspect]
     Indication: NERVE INJURY
     Dosage: 50 MG TWICE DAILY PO
     Route: 048
     Dates: start: 20081203, end: 20081205
  2. LYRICA [Suspect]
     Indication: PAIN MANAGEMENT
     Dosage: 50 MG TWICE DAILY PO
     Route: 048
     Dates: start: 20081203, end: 20081205
  3. LYRICA [Suspect]
     Indication: SCIATICA
     Dosage: 50 MG TWICE DAILY PO
     Route: 048
     Dates: start: 20081203, end: 20081205
  4. OXYCODONE HCL [Concomitant]
  5. LEXAPRO [Concomitant]
  6. XANIX [Concomitant]
  7. CLONAZEPAM [Concomitant]
  8. D-AMPHET SULF [Concomitant]

REACTIONS (21)
  - AMNESIA [None]
  - ANXIETY [None]
  - ATAXIA [None]
  - BACK PAIN [None]
  - CONFUSIONAL STATE [None]
  - DIARRHOEA [None]
  - DISTURBANCE IN ATTENTION [None]
  - DIZZINESS [None]
  - DYSPNOEA [None]
  - EUPHORIC MOOD [None]
  - GAIT DISTURBANCE [None]
  - GRIP STRENGTH DECREASED [None]
  - IMPAIRED DRIVING ABILITY [None]
  - MUSCLE SPASMS [None]
  - MYALGIA [None]
  - NERVOUSNESS [None]
  - STOOL ANALYSIS ABNORMAL [None]
  - THINKING ABNORMAL [None]
  - TREMOR [None]
  - VERTIGO [None]
  - VISION BLURRED [None]
